FAERS Safety Report 16663758 (Version 1)
Quarter: 2019Q3

REPORT INFORMATION
  Report Type: Spontaneous
  Country: CA (occurrence: CA)
  Receive Date: 20190802
  Receipt Date: 20190802
  Transmission Date: 20191004
  Serious: Yes (Death, Other)
  Sender: FDA-Public Use
  Company Number: CA-PFIZER INC-2019330103

PATIENT
  Sex: Female

DRUGS (20)
  1. CEFOTAXIME [Suspect]
     Active Substance: CEFOTAXIME SODIUM
     Indication: EVIDENCE BASED TREATMENT
     Dosage: 50 MG/KG, 2X/DAY
     Route: 065
  2. SULFAMETH/TRIMETH [Suspect]
     Active Substance: SULFAMETHOXAZOLE\TRIMETHOPRIM
     Dosage: 2 MG/KG, 4X/DAY
     Route: 048
  3. GENTAMICIN SULFATE. [Suspect]
     Active Substance: GENTAMICIN SULFATE
     Indication: EVIDENCE BASED TREATMENT
     Dosage: 5 MG/KG, UNK (1 EVERY 48 HOUR(S))
     Route: 042
  4. VANCOMYCIN HCL [Suspect]
     Active Substance: VANCOMYCIN HYDROCHLORIDE
     Indication: EVIDENCE BASED TREATMENT
     Dosage: 15 MG/KG, 1X/DAY
     Route: 065
  5. BETAMETHASONE. [Suspect]
     Active Substance: BETAMETHASONE
     Dosage: UNK
     Route: 064
  6. LEVOFLOXACIN. [Suspect]
     Active Substance: LEVOFLOXACIN
     Dosage: 10 MG/KG, UNK
     Route: 048
  7. CEFOTAXIME [Suspect]
     Active Substance: CEFOTAXIME SODIUM
     Indication: ANTIBIOTIC THERAPY
     Dosage: 50 MG/KG, 4X/DAY
     Route: 065
  8. AMPICILLIN [Suspect]
     Active Substance: AMPICILLIN
     Indication: ANTIBIOTIC THERAPY
  9. VANCOMYCIN HCL [Suspect]
     Active Substance: VANCOMYCIN HYDROCHLORIDE
     Indication: ANTIBIOTIC THERAPY
     Dosage: 15 MG, 1X/DAY
     Route: 065
  10. LEVOFLOXACIN. [Suspect]
     Active Substance: LEVOFLOXACIN
     Indication: STENOTROPHOMONAS INFECTION
     Dosage: 1 MG/KG, UNK
     Route: 048
  11. ERYTHROMYCIN. [Suspect]
     Active Substance: ERYTHROMYCIN
     Dosage: UNK
     Route: 064
  12. GENTAMICIN SULFATE. [Suspect]
     Active Substance: GENTAMICIN SULFATE
     Indication: ANTIBIOTIC THERAPY
  13. AMPICILLIN [Suspect]
     Active Substance: AMPICILLIN
     Indication: ANTIBIOTIC THERAPY
  14. SULFAMETH/TRIMETH [Suspect]
     Active Substance: SULFAMETHOXAZOLE\TRIMETHOPRIM
     Indication: STENOTROPHOMONAS INFECTION
     Dosage: 1 MG/KG, 2X/DAY
     Route: 065
  15. SULFAMETH/TRIMETH [Suspect]
     Active Substance: SULFAMETHOXAZOLE\TRIMETHOPRIM
     Dosage: 5 MG/KG, 4X/DAY
     Route: 048
  16. MEROPENEM. [Suspect]
     Active Substance: MEROPENEM
     Indication: RESPIRATORY TRACT INFECTION
     Dosage: 20 MG/KG, 2X/DAY
     Route: 065
  17. AMPICILLIN [Suspect]
     Active Substance: AMPICILLIN
     Indication: EVIDENCE BASED TREATMENT
     Dosage: 50 MG/KG, 2X/DAY
     Route: 065
  18. SULFAMETH/TRIMETH [Suspect]
     Active Substance: SULFAMETHOXAZOLE\TRIMETHOPRIM
     Dosage: 3 MG/KG, UNK
     Route: 065
  19. SULFAMETH/TRIMETH [Suspect]
     Active Substance: SULFAMETHOXAZOLE\TRIMETHOPRIM
     Dosage: 2.5 MG/KG, 4X/DAY
     Route: 048
  20. AMPICILLIN [Suspect]
     Active Substance: AMPICILLIN
     Indication: EVIDENCE BASED TREATMENT
     Route: 064

REACTIONS (12)
  - Pneumonia bacterial [Fatal]
  - Sepsis [Fatal]
  - Stenotrophomonas infection [Fatal]
  - Death neonatal [Fatal]
  - Lethargy [Fatal]
  - Pneumonia [Fatal]
  - Premature baby [Fatal]
  - Respiratory disorder [Fatal]
  - Umbilical erythema [Fatal]
  - Foetal exposure during pregnancy [Fatal]
  - Hypotonia [Fatal]
  - Renal failure [Fatal]
